FAERS Safety Report 23075804 (Version 1)
Quarter: 2023Q4

REPORT INFORMATION
  Report Type: Spontaneous
  Country: US (occurrence: None)
  Receive Date: 20231017
  Receipt Date: 20231017
  Transmission Date: 20240109
  Serious: Yes (Life-Threatening)
  Sender: FDA-Public Use
  Company Number: None

PATIENT
  Age: 42 Year
  Sex: Female

DRUGS (1)
  1. TYSABRI [Suspect]
     Active Substance: NATALIZUMAB
     Dosage: OTHER FREQUENCY : EVERY4UNKNOWN;?

REACTIONS (7)
  - Infusion related reaction [None]
  - Burning sensation [None]
  - Erythema [None]
  - Urticaria [None]
  - Lip swelling [None]
  - Dyspnoea [None]
  - Throat tightness [None]
